FAERS Safety Report 4738687-6 (Version None)
Quarter: 2005Q3

REPORT INFORMATION
  Report Type: 
  Country: None (occurrence: None)
  Receive Date: 20050803
  Receipt Date: 20050720
  Transmission Date: 20060218
  Serious: Yes (Hospitalization)
  Sender: FDA-Public Use
  Company Number: GBS050717952

PATIENT
  Age: 81 Year
  Sex: Female
  Weight: 55 kg

DRUGS (10)
  1. FLUOXETINE [Suspect]
     Dosage: 20 MG
     Dates: start: 20050501, end: 20050704
  2. LINEZOLID [Concomitant]
  3. VANCOMYCIN [Concomitant]
  4. TETRACYCLINE [Concomitant]
  5. CELECOXIB [Concomitant]
  6. AMITRIPTYLINE [Concomitant]
  7. LANSOPRAZOLE [Concomitant]
  8. PARACETAMOL [Concomitant]
  9. CODEINE PHOSPHATE [Concomitant]
  10. SLOW SODIUM (SODIUM CHLORIDE) [Concomitant]

REACTIONS (5)
  - BLOOD PRESSURE DECREASED [None]
  - HYPOTHERMIA [None]
  - STAPHYLOCOCCAL INFECTION [None]
  - ULCER [None]
  - WHITE BLOOD CELL COUNT DECREASED [None]
